FAERS Safety Report 23910146 (Version 1)
Quarter: 2024Q2

REPORT INFORMATION
  Report Type: Spontaneous
  Country: RO (occurrence: RO)
  Receive Date: 20240528
  Receipt Date: 20240528
  Transmission Date: 20240716
  Serious: Yes (Other)
  Sender: FDA-Public Use
  Company Number: RO-BAYER-2024A074898

PATIENT
  Age: 33 Year
  Sex: Female

DRUGS (3)
  1. INTERFERON BETA-1B [Suspect]
     Active Substance: INTERFERON BETA-1B
  2. FINGOLIMOD [Concomitant]
     Active Substance: FINGOLIMOD
     Dosage: 12 UNK
  3. OCRELIZUMAB [Concomitant]
     Active Substance: OCRELIZUMAB
     Dosage: UNK
     Dates: start: 202211

REACTIONS (4)
  - Multiple sclerosis [None]
  - Pyramidal tract syndrome [None]
  - Monoparesis [None]
  - Ataxia [None]
